FAERS Safety Report 5080498-9 (Version None)
Quarter: 2006Q3

REPORT INFORMATION
  Report Type: 
  Country: None (occurrence: None)
  Receive Date: 20060815
  Receipt Date: 20011009
  Transmission Date: 20061208
  Serious: Yes (Hospitalization)
  Sender: FDA-Public Use
  Company Number: FR-SOLVAY-00201004289

PATIENT
  Age: 27648 Day
  Sex: Female
  Weight: 68 kg

DRUGS (3)
  1. OMEPRAZOLE [Concomitant]
     Indication: ILL-DEFINED DISORDER
     Dosage: DAILY DOSE: UNK.
     Route: 065
     Dates: start: 20010813
  2. PERINDOPRIL ERBUMINE [Suspect]
     Indication: CORONARY ARTERY DISEASE
     Dosage: DAILY DOSE: 1 DF.
     Route: 048
     Dates: start: 20010817
  3. ACETYLSALICYLIC ACID SRT [Concomitant]
     Indication: ILL-DEFINED DISORDER
     Dosage: DAILY DOSE: UNK.
     Route: 065

REACTIONS (1)
  - HYPERTENSIVE CRISIS [None]
